FAERS Safety Report 7964380-2 (Version None)
Quarter: 2011Q4

REPORT INFORMATION
  Report Type: 
  Country: None (occurrence: None)
  Receive Date: 20111208
  Receipt Date: 20111205
  Transmission Date: 20120403
  Serious: Yes (Other)
  Sender: FDA-Public Use
  Company Number: GB-PFIZER INC-2011296908

PATIENT
  Age: 32 Year
  Sex: Male

DRUGS (8)
  1. NITRAZEPAM [Concomitant]
     Indication: SEDATION
     Dosage: 5 MG, 1X/DAY
  2. MIRTAZAPINE [Concomitant]
     Indication: DEPRESSION
     Dosage: 30 MG, 1X/DAY
  3. PREGABALIN [Suspect]
     Indication: ANXIETY
     Dosage: 150 MG, 2X/DAY
     Route: 048
  4. DEPAKOTE [Concomitant]
     Indication: BIPOLAR DISORDER
     Dosage: 750 MG, UNK
  5. DIAZEPAM [Concomitant]
     Indication: ANXIETY
     Dosage: 15 MG,DAILY
  6. PREGABALIN [Suspect]
     Indication: NEURALGIA
  7. METHADONE [Concomitant]
     Indication: DRUG DEPENDENCE
     Dosage: 80 MG, 1X/DAY
  8. DIAZEPAM [Concomitant]
     Indication: BACK PAIN

REACTIONS (6)
  - AGITATION [None]
  - CONDITION AGGRAVATED [None]
  - HYPERHIDROSIS [None]
  - DRUG DEPENDENCE [None]
  - WITHDRAWAL SYNDROME [None]
  - ANXIETY [None]
